FAERS Safety Report 6031511-3 (Version None)
Quarter: 2009Q1

REPORT INFORMATION
  Report Type: 
  Country: None (occurrence: None)
  Receive Date: 20090108
  Receipt Date: 20081222
  Transmission Date: 20090719
  Serious: Yes (Hospitalization, Other)
  Sender: FDA-Public Use
  Company Number: FR-PFIZER INC-2009150668

PATIENT

DRUGS (10)
  1. TAHOR [Suspect]
     Indication: HYPERCHOLESTEROLAEMIA
     Dosage: EVERY DAY TABLETS
     Route: 048
  2. LYRICA [Suspect]
     Dosage: 600 MG, UNK
     Route: 048
     Dates: start: 20060901
  3. NOZINAN [Suspect]
     Indication: DEPRESSIVE SYMPTOM
     Dosage: 25 MG, 1X/DAY
     Route: 048
     Dates: start: 20080301
  4. LASILIX [Suspect]
     Indication: OEDEMA PERIPHERAL
     Dosage: 20 MG, 1X/DAY
     Route: 048
     Dates: start: 20080401
  5. CLONAZEPAM [Suspect]
     Indication: NEURALGIA
     Dosage: 2 MG, UNK
     Route: 048
     Dates: start: 20030601
  6. ANAFRANIL [Suspect]
     Indication: NEURALGIA
     Dosage: 50 MG, UNK
     Route: 048
     Dates: start: 20070701
  7. TYSABRI [Suspect]
     Indication: MULTIPLE SCLEROSIS
     Dosage: 300 MG, UNK
     Route: 042
     Dates: start: 20071127
  8. ESCITALOPRAM OXALATE [Suspect]
     Indication: DEPRESSION
     Dosage: 20 MG, UNK
     Route: 048
     Dates: start: 20080301
  9. EFFEXOR [Suspect]
     Indication: DEPRESSION
     Dosage: 75 MG, UNK
     Route: 048
     Dates: start: 20080701
  10. TRANXENE [Suspect]
     Indication: ANXIETY
     Dosage: 10 MG, UNK
     Route: 048
     Dates: start: 20080801

REACTIONS (2)
  - INTENTIONAL OVERDOSE [None]
  - SUICIDE ATTEMPT [None]
